FAERS Safety Report 20536271 (Version 2)
Quarter: 2022Q1

REPORT INFORMATION
  Report Type: Spontaneous
  Country: NL (occurrence: NL)
  Receive Date: 20220302
  Receipt Date: 20220326
  Transmission Date: 20220423
  Serious: Yes (Other)
  Sender: FDA-Public Use
  Company Number: None

PATIENT
  Age: 23 Year
  Sex: Female
  Weight: 95 kg

DRUGS (17)
  1. TOPIRAMATE [Suspect]
     Active Substance: TOPIRAMATE
     Indication: Post-traumatic stress disorder
     Dosage: TABLET COATED 25 MG , 1XD
     Dates: start: 20220202
  2. OXAZEPAM [Concomitant]
     Active Substance: OXAZEPAM
     Dosage: TABLET, 10 MG (MILLIGRAM)
  3. DYMISTA [Concomitant]
     Active Substance: AZELASTINE HYDROCHLORIDE\FLUTICASONE PROPIONATE
     Dosage: NASAL SPRAY, 137/50 UG/DOSE (MICROGRAMS PER DOSE)
  4. ASCORBIC ACID [Concomitant]
     Active Substance: ASCORBIC ACID
  5. PANTOPRAZOLE [Concomitant]
     Active Substance: PANTOPRAZOLE
     Dosage: GASTRO-RESISTANT TABLET, 20 MG (MILLIGRAMS)
  6. RIZATRIPTAN [Concomitant]
     Active Substance: RIZATRIPTAN
     Dosage: ORODISPERSIBLE TABLET, 10 MG (MILLIGRAM)
  7. SEROQUEL [Concomitant]
     Active Substance: QUETIAPINE FUMARATE
     Dosage: FILM-COATED TABLET, 25 MG (MILLIGRAMS)
  8. VENTOLIN [Concomitant]
     Active Substance: ALBUTEROL SULFATE
     Dosage: POWDER FOR INHALATION, 200 UG/DOSE (MICROGRAMS PER DOSE)
  9. METHYLPHENIDATE HYDROCHLORIDE [Concomitant]
     Active Substance: METHYLPHENIDATE HYDROCHLORIDE
     Dosage: MODIFIED-RELEASE CAPSULE, 30 MG (MILLIGRAMS)
  10. LOCOID [Concomitant]
     Active Substance: HYDROCORTISONE BUTYRATE
     Dosage: CREAM, 1 MG/G (MILLIGRAMS PER GRAM)
  11. FLUTICASONE [Concomitant]
     Active Substance: FLUTICASONE
     Dosage: CREAM, 0.5 MG/G (MILLIGRAMS PER GRAM)
  12. MONTELUKAST [Concomitant]
     Active Substance: MONTELUKAST SODIUM
     Dosage: COATED TABLET, 10 MG (MILLIGRAMS)
  13. ALLERGOVIT [Concomitant]
     Dosage: A+B 2 X3.0 ML+10 SP
  14. METOPROLOL [Concomitant]
     Active Substance: METOPROLOL
     Dosage: TABLET, 50 MG (MILLIGRAM)
  15. EBASTINE [Concomitant]
     Active Substance: EBASTINE
     Dosage: 2X 10MG, COATED TABLET 10 MG
  16. VORTIOXETINE [Concomitant]
     Active Substance: VORTIOXETINE
     Dosage: TABLET, 20 MG (MILLIGRAM)
  17. SYMBICORT [Concomitant]
     Active Substance: BUDESONIDE\FORMOTEROL FUMARATE DIHYDRATE
     Dosage: AEROSOL, 200/6 UG/DOSE (MICROGRAMS PER DOSE)

REACTIONS (10)
  - Emotional poverty [Not Recovered/Not Resolved]
  - Weight decreased [Not Recovered/Not Resolved]
  - Bradycardia [Not Recovered/Not Resolved]
  - Sexual dysfunction [Not Recovered/Not Resolved]
  - Nocturia [Recovered/Resolved]
  - Decreased appetite [Not Recovered/Not Resolved]
  - Fatigue [Recovering/Resolving]
  - Off label use [Unknown]
  - Visual impairment [Not Recovered/Not Resolved]
  - Hypotension [Recovering/Resolving]

NARRATIVE: CASE EVENT DATE: 20220202
